FAERS Safety Report 6479609-X (Version None)
Quarter: 2009Q4

REPORT INFORMATION
  Report Type: 
  Country: None (occurrence: None)
  Receive Date: 20091208
  Receipt Date: 20091126
  Transmission Date: 20100525
  Serious: Yes (Hospitalization, Disabling, Other)
  Sender: FDA-Public Use
  Company Number: ES-JNJFOC-20040204089

PATIENT
  Age: 47 Year
  Sex: Male

DRUGS (6)
  1. REMICADE [Suspect]
     Route: 042
  2. REMICADE [Suspect]
     Route: 042
  3. REMICADE [Suspect]
     Indication: ANKYLOSING SPONDYLITIS
     Route: 042
  4. METHOTREXATE [Concomitant]
  5. SALAZOPYRIN [Concomitant]
  6. ISONIAZID [Concomitant]

REACTIONS (11)
  - ACUTE RESPIRATORY DISTRESS SYNDROME [None]
  - ACUTE RESPIRATORY FAILURE [None]
  - ARTHRALGIA [None]
  - BACTERIAL TEST POSITIVE [None]
  - DEEP VEIN THROMBOSIS [None]
  - DRY EYE [None]
  - GIARDIASIS [None]
  - HEPATITIS [None]
  - PNEUMONIA CYTOMEGALOVIRAL [None]
  - PSEUDOMONAS INFECTION [None]
  - PULMONARY EMBOLISM [None]
